FAERS Safety Report 11314585 (Version 2)
Quarter: 2015Q3

REPORT INFORMATION
  Report Type: Spontaneous
  Country: IT (occurrence: IT)
  Receive Date: 20150727
  Receipt Date: 20150731
  Transmission Date: 20151125
  Serious: Yes (Hospitalization)
  Sender: FDA-Public Use
  Company Number: IT-ASTRAZENECA-2015SE72054

PATIENT
  Age: 27231 Day
  Sex: Female
  Weight: 77 kg

DRUGS (6)
  1. LUVION [Concomitant]
     Active Substance: CANRENONE
     Route: 048
     Dates: start: 20150531, end: 20150722
  2. BRILIQUE [Suspect]
     Active Substance: TICAGRELOR
     Indication: THROMBOSIS PROPHYLAXIS
     Route: 048
     Dates: start: 20150530
  3. LUVION [Concomitant]
     Active Substance: CANRENONE
     Route: 048
     Dates: start: 20150531, end: 20150722
  4. CARDIOASPIRIN (ASA) [Concomitant]
     Active Substance: ASPIRIN
  5. LASIX [Concomitant]
     Active Substance: FUROSEMIDE
     Route: 048
     Dates: start: 20150531, end: 20150722
  6. BISOPROLOL [Concomitant]
     Active Substance: BISOPROLOL

REACTIONS (2)
  - Acute kidney injury [Recovering/Resolving]
  - Hyperuricaemia [Unknown]

NARRATIVE: CASE EVENT DATE: 20150717
